FAERS Safety Report 23957185 (Version 1)
Quarter: 2024Q2

REPORT INFORMATION
  Report Type: Spontaneous
  Country: FR (occurrence: FR)
  Receive Date: 20240610
  Receipt Date: 20240610
  Transmission Date: 20240716
  Serious: Yes (Other)
  Sender: FDA-Public Use
  Company Number: None

PATIENT
  Age: 78 Year
  Sex: Male
  Weight: 94 kg

DRUGS (4)
  1. OXALIPLATIN [Suspect]
     Active Substance: OXALIPLATIN
     Indication: B-cell lymphoma
     Dosage: 200 MG; CYCLICAL;QCY
     Route: 042
     Dates: start: 20240426, end: 20240426
  2. RASBURICASE [Suspect]
     Active Substance: RASBURICASE
     Indication: Hyperuricaemia
     Dosage: 7.5 MG; D1 ON 22.04, D2 ON 27.04 7.5MG; QCY
     Route: 042
     Dates: start: 20240422, end: 20240427
  3. RITUXIMAB [Suspect]
     Active Substance: RITUXIMAB
     Indication: B-cell lymphoma
     Dosage: 800 MG; QCY
     Route: 042
     Dates: start: 20240419, end: 20240419
  4. GEMCITABINE HYDROCHLORIDE [Suspect]
     Active Substance: GEMCITABINE HYDROCHLORIDE
     Indication: B-cell lymphoma
     Dosage: 2.1 G; QCY
     Route: 042
     Dates: start: 20240426, end: 20240426

REACTIONS (1)
  - Hepatocellular injury [Recovering/Resolving]

NARRATIVE: CASE EVENT DATE: 20240429
